FAERS Safety Report 9031333 (Version 2)
Quarter: 2013Q1

REPORT INFORMATION
  Report Type: Spontaneous
  Country: US (occurrence: US)
  Receive Date: 20130124
  Receipt Date: 20130208
  Transmission Date: 20140127
  Serious: No
  Sender: FDA-Public Use
  Company Number: US-VERTEX PHARMACEUTICALS INC.-2013-001035

PATIENT
  Age: 57 Year
  Sex: Male
  Weight: 66 kg

DRUGS (8)
  1. INCIVEK [Suspect]
     Indication: HEPATITIS C
     Dosage: 750 MG, TID
     Route: 048
     Dates: start: 20130114
  2. PEGASYS [Suspect]
     Indication: HEPATITIS C
     Dosage: 180 ?G, QW
     Route: 058
     Dates: start: 20130114
  3. RIBASPHERE [Suspect]
     Indication: HEPATITIS C
     Dosage: 3 DF, BID
     Dates: start: 20130114
  4. AMLODIPINE [Concomitant]
     Indication: HYPERTENSION
  5. BENAZEPRIL [Concomitant]
     Dosage: 5- 10
     Route: 048
  6. ZOLPIDEM [Suspect]
     Dosage: 10 MG, PRN
  7. PAROXETINE [Concomitant]
     Dosage: 10 MG, QD
  8. DIAZEPAM [Concomitant]

REACTIONS (5)
  - Heart rate increased [Not Recovered/Not Resolved]
  - Rash erythematous [Recovered/Resolved]
  - Anorectal discomfort [Not Recovered/Not Resolved]
  - Nausea [Not Recovered/Not Resolved]
  - Pruritus [Unknown]
